FAERS Safety Report 15363267 (Version 2)
Quarter: 2018Q4

REPORT INFORMATION
  Report Type: Spontaneous
  Country: PL (occurrence: PL)
  Receive Date: 20180907
  Receipt Date: 20181204
  Transmission Date: 20190204
  Serious: Yes (Hospitalization, Other)
  Sender: FDA-Public Use
  Company Number: PL-NOVOPROD-619117

PATIENT
  Age: 60 Year
  Sex: Male

DRUGS (7)
  1. INSULIN [Suspect]
     Active Substance: INSULIN NOS
     Indication: TYPE 2 DIABETES MELLITUS
     Dosage: 10 U, QD (BEFORE SLEEP)
     Route: 065
  2. METFORMIN HYDROCHLORIDE. [Suspect]
     Active Substance: METFORMIN HYDROCHLORIDE
     Dosage: 1700 MG, QD
     Route: 048
     Dates: start: 200909, end: 201105
  3. PREDNISONE. [Suspect]
     Active Substance: PREDNISONE
     Indication: DRUG-INDUCED LIVER INJURY
     Dosage: PRESCRIBED FOR ONE MONTH IN REDUCTING DOSES
     Route: 065
     Dates: start: 201105, end: 201106
  4. INSULIN HUMAN [Suspect]
     Active Substance: INSULIN HUMAN
     Indication: TYPE 2 DIABETES MELLITUS
     Dosage: 3 TIMES A DAY BEFORE MEALS IN DOSES DEPENDING ON GLYCEMIC LEVEL (APPROX. 10-12 IU)
     Route: 065
     Dates: start: 201105
  5. INSULIN HUMAN [Suspect]
     Active Substance: INSULIN HUMAN
     Dosage: UNKNOWN
     Route: 065
  6. INSULIN GLARGINE [Suspect]
     Active Substance: INSULIN GLARGINE
     Indication: TYPE 2 DIABETES MELLITUS
     Dosage: 10.00 IU, QD(BEFORE SLEEPING)
     Route: 065
     Dates: start: 201105, end: 201106
  7. METFORMIN HYDROCHLORIDE. [Suspect]
     Active Substance: METFORMIN HYDROCHLORIDE
     Indication: TYPE 2 DIABETES MELLITUS
     Dosage: 500 MG, QD
     Route: 048
     Dates: start: 200902

REACTIONS (7)
  - Diabetic metabolic decompensation [Unknown]
  - Drug effect incomplete [Unknown]
  - Drug-induced liver injury [Recovered/Resolved]
  - Drug interaction [Unknown]
  - Drug intolerance [Unknown]
  - Jaundice [Recovered/Resolved]
  - Hyperglycaemia [Recovered/Resolved]

NARRATIVE: CASE EVENT DATE: 201106
